FAERS Safety Report 19077986 (Version 1)
Quarter: 2021Q1

REPORT INFORMATION
  Report Type: Spontaneous
  Country: IN (occurrence: IN)
  Receive Date: 20210331
  Receipt Date: 20210331
  Transmission Date: 20210420
  Serious: Yes (Death)
  Sender: FDA-Public Use
  Company Number: IN-PFIZER INC-2020066006

PATIENT
  Age: 57 Year
  Sex: Female

DRUGS (3)
  1. PALBACE [Suspect]
     Active Substance: PALBOCICLIB
     Indication: BREAST CANCER METASTATIC
     Dosage: 125 MG, 1X/DAY
     Route: 048
     Dates: start: 20190706
  2. PALBACE [Suspect]
     Active Substance: PALBOCICLIB
     Dosage: 125 MG, TWO WEEKS ON AND ONE WEEK OFF
     Route: 048
  3. PALBACE [Suspect]
     Active Substance: PALBOCICLIB
     Dosage: 125 MG, 1X/DAY
     Route: 048
     Dates: end: 20201021

REACTIONS (2)
  - Death [Fatal]
  - Blood count abnormal [Unknown]

NARRATIVE: CASE EVENT DATE: 20201021
